FAERS Safety Report 4703754-X (Version None)
Quarter: 2005Q2

REPORT INFORMATION
  Report Type: 
  Country: None (occurrence: None)
  Receive Date: 20050628
  Receipt Date: 20050121
  Transmission Date: 20051028
  Serious: Yes (Life-Threatening)
  Sender: FDA-Public Use
  Company Number: 2005016804

PATIENT
  Age: 61 Year
  Sex: Female
  Weight: 65.7716 kg

DRUGS (4)
  1. CELEBREX [Suspect]
     Indication: ARTHRITIS
     Dates: end: 20041101
  2. TOLTERODINE TARTRATE [Suspect]
     Indication: CYSTOCELE
     Dosage: 4 MG (4 MG, 1 IN 1 D),
     Dates: start: 20030101
  3. PROPOXYPHENE (DEXTROPROPOXYPHENE) [Concomitant]
  4. LEXAPRO [Concomitant]

REACTIONS (4)
  - ARTHRITIS [None]
  - BLADDER DISORDER [None]
  - CONDITION AGGRAVATED [None]
  - MYOCARDIAL INFARCTION [None]
